FAERS Safety Report 17855877 (Version 2)
Quarter: 2020Q2

REPORT INFORMATION
  Report Type: Spontaneous
  Country: PL (occurrence: PL)
  Receive Date: 20200603
  Receipt Date: 20200608
  Transmission Date: 20200714
  Serious: Yes (Other)
  Sender: FDA-Public Use
  Company Number: NVSC2020PL151107

PATIENT
  Age: 59 Year
  Sex: Male

DRUGS (2)
  1. OCTREOTIDE. [Suspect]
     Active Substance: OCTREOTIDE
     Dosage: 30 MG, Q4W
     Route: 065
  2. OCTREOTIDE. [Suspect]
     Active Substance: OCTREOTIDE
     Indication: CARCINOID SYNDROME
     Dosage: 20 MG, Q4W
     Route: 065
     Dates: start: 201611

REACTIONS (11)
  - Cardiac failure [Recovering/Resolving]
  - Regurgitation [Recovering/Resolving]
  - Oedema peripheral [Recovering/Resolving]
  - Dyspnoea exertional [Recovering/Resolving]
  - Erythema [Recovering/Resolving]
  - Right atrial enlargement [Recovering/Resolving]
  - General physical health deterioration [Recovering/Resolving]
  - Tricuspid valve incompetence [Recovering/Resolving]
  - Fatigue [Recovering/Resolving]
  - Pulmonary valve stenosis [Recovering/Resolving]
  - Exercise tolerance decreased [Recovering/Resolving]

NARRATIVE: CASE EVENT DATE: 201611
